FAERS Safety Report 25495392 (Version 1)
Quarter: 2025Q2

REPORT INFORMATION
  Report Type: Spontaneous
  Country: US (occurrence: US)
  Receive Date: 20250630
  Receipt Date: 20250630
  Transmission Date: 20250716
  Serious: No
  Sender: FOUNDATION CONSUMER HEALTHCARE
  Company Number: US-FOUNDATIONCONSUMERHC-2025-US-005007

PATIENT
  Sex: Female

DRUGS (1)
  1. PLAN B ONE-STEP [Suspect]
     Active Substance: LEVONORGESTREL
     Indication: Post coital contraception
     Route: 048
     Dates: start: 20250127, end: 20250127

REACTIONS (3)
  - Pain [Unknown]
  - Abdominal discomfort [Unknown]
  - Abdominal discomfort [Unknown]
